FAERS Safety Report 7449456-0 (Version None)
Quarter: 2011Q2

REPORT INFORMATION
  Report Type: 
  Country: None (occurrence: None)
  Receive Date: 20110502
  Receipt Date: 20090818
  Transmission Date: 20111010
  Serious: No
  Sender: FDA-Public Use
  Company Number: 2009BI026302

PATIENT
  Age: 44 Year
  Sex: Female

DRUGS (1)
  1. TYSABRI [Suspect]
     Indication: MULTIPLE SCLEROSIS
     Route: 042
     Dates: start: 20080528

REACTIONS (8)
  - VISUAL ACUITY REDUCED [None]
  - GENERAL SYMPTOM [None]
  - PARAESTHESIA [None]
  - TEMPERATURE INTOLERANCE [None]
  - HYPOAESTHESIA [None]
  - URINARY INCONTINENCE [None]
  - MEMORY IMPAIRMENT [None]
  - VISUAL IMPAIRMENT [None]
